FAERS Safety Report 21902514 (Version 3)
Quarter: 2023Q2

REPORT INFORMATION
  Report Type: Report from Study
  Country: US (occurrence: US)
  Receive Date: 20230124
  Receipt Date: 20230610
  Transmission Date: 20230722
  Serious: Yes (Other)
  Sender: FDA-Public Use
  Company Number: US-ARGENX-2022-ARGX-US002013

PATIENT
  Age: 84 Year
  Sex: Male
  Weight: 122.45 kg

DRUGS (2)
  1. VYVGART [Suspect]
     Active Substance: EFGARTIGIMOD ALFA-FCAB
     Indication: Myasthenia gravis
     Dosage: UNK
     Route: 042
     Dates: start: 20221122
  2. BENADRYL [Concomitant]
     Active Substance: DIPHENHYDRAMINE HYDROCHLORIDE
     Indication: Product used for unknown indication
     Dosage: UNK

REACTIONS (4)
  - Bladder cancer [Not Recovered/Not Resolved]
  - Vomiting [Unknown]
  - Constipation [Unknown]
  - Insomnia [Unknown]

NARRATIVE: CASE EVENT DATE: 20220928
